FAERS Safety Report 7776424-1 (Version None)
Quarter: 2011Q3

REPORT INFORMATION
  Report Type: 
  Country: None (occurrence: None)
  Receive Date: 20110926
  Receipt Date: 20110920
  Transmission Date: 20111222
  Serious: Yes (Other)
  Sender: FDA-Public Use
  Company Number: US-PFIZER INC-2011224055

PATIENT
  Sex: Female
  Weight: 63.946 kg

DRUGS (5)
  1. XANAX [Suspect]
     Indication: PANIC ATTACK
  2. ACETAMINOPHEN [Suspect]
     Indication: HEADACHE
     Dosage: UNK
     Dates: start: 20110901
  3. XANAX [Suspect]
     Indication: ARTERIAL DISORDER
  4. TOPROL-XL [Concomitant]
     Indication: CARDIAC DISORDER
     Dosage: 25 MG, DAILY
  5. XANAX [Suspect]
     Indication: ANXIETY
     Dosage: 0.5 MG, 3X/DAY
     Route: 048
     Dates: start: 20100101

REACTIONS (9)
  - ABDOMINAL DISTENSION [None]
  - MUSCLE SPASMS [None]
  - POLLAKIURIA [None]
  - DRUG INEFFECTIVE [None]
  - ABDOMINAL PAIN UPPER [None]
  - PAIN IN JAW [None]
  - PAIN [None]
  - JOINT STIFFNESS [None]
  - HEADACHE [None]
